FAERS Safety Report 4425211-0 (Version None)
Quarter: 2004Q3

REPORT INFORMATION
  Report Type: 
  Country: None (occurrence: None)
  Receive Date: 20040813
  Receipt Date: 20040802
  Transmission Date: 20050211
  Serious: Yes (Death, Hospitalization)
  Sender: FDA-Public Use
  Company Number: JP-JNJFOC-20040104296

PATIENT
  Sex: Female
  Weight: 39 kg

DRUGS (21)
  1. REMICADE [Suspect]
     Dosage: 117MG
     Route: 041
  2. REMICADE [Suspect]
     Indication: RHEUMATOID ARTHRITIS
     Dosage: 117MG
     Route: 041
  3. INFLUENZA VACCINE [Suspect]
     Indication: IMMUNISATION
     Route: 058
  4. PREDONINE [Suspect]
     Route: 049
     Dates: end: 20031219
  5. PREDONINE [Suspect]
     Route: 049
     Dates: end: 20031219
  6. PREDONINE [Suspect]
     Indication: RHEUMATOID ARTHRITIS
     Route: 049
     Dates: end: 20031219
  7. RHEUMATREX [Suspect]
     Indication: RHEUMATOID ARTHRITIS
     Route: 049
     Dates: start: 20030311, end: 20031209
  8. PREDONINE [Concomitant]
     Route: 042
     Dates: start: 20031220, end: 20040121
  9. INFREE S [Concomitant]
     Indication: RHEUMATOID ARTHRITIS
     Route: 049
     Dates: start: 20030407, end: 20031209
  10. LEUCOVORIN [Concomitant]
     Route: 049
     Dates: start: 20030409, end: 20031211
  11. TAKEPRON [Concomitant]
     Indication: RHEUMATOID ARTHRITIS
     Route: 049
     Dates: start: 20031027, end: 20031219
  12. CYTOTEC [Concomitant]
     Route: 049
     Dates: start: 20030407, end: 20031219
  13. GLAKAY [Concomitant]
     Indication: OSTEOPOROSIS
     Route: 049
     Dates: start: 20030407, end: 20031219
  14. DEPROMEL [Concomitant]
     Route: 049
     Dates: start: 20030414, end: 20031219
  15. DEPROMEL [Concomitant]
     Indication: DEPRESSION
     Route: 049
     Dates: start: 20030414, end: 20031219
  16. DORAL [Concomitant]
     Indication: INSOMNIA
     Route: 049
     Dates: start: 20030414, end: 20031219
  17. LASIX [Concomitant]
     Indication: OEDEMA
     Route: 049
     Dates: start: 20030407, end: 20031210
  18. CYANOCOBALAMIN [Concomitant]
     Route: 049
     Dates: start: 20030414, end: 20031219
  19. ALDACTONE A [Concomitant]
     Route: 049
     Dates: start: 20031115, end: 20031210
  20. ALDACTONE A [Concomitant]
     Indication: RHEUMATOID ARTHRITIS
     Route: 049
     Dates: start: 20031115, end: 20031210
  21. SHIOSOL [Concomitant]
     Indication: RHEUMATOID ARTHRITIS
     Route: 030

REACTIONS (17)
  - ALANINE AMINOTRANSFERASE INCREASED [None]
  - ANAEMIA [None]
  - ASTHMA [None]
  - BLOOD GLUCOSE INCREASED [None]
  - CONTUSION [None]
  - DISSEMINATED TUBERCULOSIS [None]
  - DRUG INTERACTION [None]
  - FALL [None]
  - FEMUR FRACTURE [None]
  - GAMMA-GLUTAMYLTRANSFERASE INCREASED [None]
  - HYPERCAPNIA [None]
  - INFECTION [None]
  - INTERSTITIAL LUNG DISEASE [None]
  - PLATELET COUNT DECREASED [None]
  - RHEUMATOID LUNG [None]
  - STRESS SYMPTOMS [None]
  - THERAPY NON-RESPONDER [None]
